FAERS Safety Report 5247880-8 (Version None)
Quarter: 2007Q1

REPORT INFORMATION
  Report Type: 
  Country: None (occurrence: None)
  Receive Date: 20070223
  Receipt Date: 20070214
  Transmission Date: 20070707
  Serious: Yes (Death, Hospitalization)
  Sender: FDA-Public Use
  Company Number: PHBS2007ES02958

PATIENT
  Age: 54 Year
  Sex: Male

DRUGS (3)
  1. PREDNISONE [Concomitant]
     Indication: HEART TRANSPLANT
  2. SIROLIMUS [Concomitant]
     Indication: HEART TRANSPLANT
  3. CYCLOSPORINE [Suspect]
     Indication: HEART TRANSPLANT
     Dates: start: 20050701

REACTIONS (9)
  - BACTERIAL INFECTION [None]
  - DEPRESSED LEVEL OF CONSCIOUSNESS [None]
  - LEUKOCYTOSIS [None]
  - NEUTROPHIL COUNT INCREASED [None]
  - NUCLEAR MAGNETIC RESONANCE IMAGING BRAIN ABNORMAL [None]
  - PAPILLOEDEMA [None]
  - PNEUMONIA [None]
  - PYREXIA [None]
  - RASH PUSTULAR [None]
